FAERS Safety Report 12405558 (Version 1)
Quarter: 2016Q2

REPORT INFORMATION
  Report Type: Spontaneous
  Country: RU (occurrence: RU)
  Receive Date: 20160525
  Receipt Date: 20160525
  Transmission Date: 20160815
  Serious: Yes (Other)
  Sender: FDA-Public Use
  Company Number: RU-ROCHE-1762613

PATIENT
  Age: 45 Year
  Sex: Female

DRUGS (8)
  1. POLYOXIDONIUM [Concomitant]
     Indication: CYTOMEGALOVIRUS INFECTION
     Route: 065
     Dates: start: 2015
  2. HEPTRAL [Concomitant]
     Active Substance: ADEMETIONINE
  3. VALCYTE [Suspect]
     Active Substance: VALGANCICLOVIR HYDROCHLORIDE
     Indication: CYTOMEGALOVIRUS INFECTION
     Dosage: FOR 2 WEEKS
     Route: 048
     Dates: start: 2015, end: 2015
  4. VALCYTE [Suspect]
     Active Substance: VALGANCICLOVIR HYDROCHLORIDE
     Dosage: FOR 2 WEEKS
     Route: 048
     Dates: start: 201604
  5. POLYOXIDONIUM [Concomitant]
     Indication: HERPES SIMPLEX
  6. VALCYTE [Suspect]
     Active Substance: VALGANCICLOVIR HYDROCHLORIDE
     Indication: HERPES SIMPLEX
     Dosage: FOR 1 MONTH
     Route: 048
     Dates: start: 2015, end: 2015
  7. VALCYTE [Suspect]
     Active Substance: VALGANCICLOVIR HYDROCHLORIDE
     Route: 048
  8. BERLITHION [Concomitant]

REACTIONS (8)
  - Raynaud^s phenomenon [Recovering/Resolving]
  - Stomatitis [Recovering/Resolving]
  - Fungal skin infection [Recovering/Resolving]
  - Cheilitis [Recovering/Resolving]
  - Chills [Recovered/Resolved]
  - Product use issue [Unknown]
  - Deep vein thrombosis [Recovered/Resolved]
  - Dry skin [Recovering/Resolving]

NARRATIVE: CASE EVENT DATE: 2015
